FAERS Safety Report 7028391-6 (Version None)
Quarter: 2010Q4

REPORT INFORMATION
  Report Type: 
  Country: None (occurrence: None)
  Receive Date: 20101005
  Receipt Date: 20100930
  Transmission Date: 20110411
  Serious: Yes (Other)
  Sender: FDA-Public Use
  Company Number: FR-PFIZER INC-2010124048

PATIENT
  Age: 49 Year
  Sex: Female

DRUGS (2)
  1. FELDENE [Suspect]
     Indication: INTERVERTEBRAL DISC PROTRUSION
     Dosage: 1 DF, 2X/WEEK
     Route: 048
     Dates: start: 20090301, end: 20100301
  2. PONSTYL [Concomitant]

REACTIONS (1)
  - ECZEMA [None]
